FAERS Safety Report 22854553 (Version 2)
Quarter: 2023Q4

REPORT INFORMATION
  Report Type: Spontaneous
  Country: US (occurrence: US)
  Receive Date: 20230823
  Receipt Date: 20231124
  Transmission Date: 20240109
  Serious: Yes (Hospitalization, Other)
  Sender: FDA-Public Use
  Company Number: US-PFIZER INC-PV202300095283

PATIENT
  Age: 35 Year
  Sex: Male
  Weight: 42.18 kg

DRUGS (13)
  1. OXBRYTA [Suspect]
     Active Substance: VOXELOTOR
     Indication: Sickle cell anaemia
     Dosage: 500 MG, DAILY
     Dates: start: 20220725
  2. OXBRYTA [Suspect]
     Active Substance: VOXELOTOR
     Dosage: 1000 MG, DAILY
     Route: 048
  3. OXBRYTA [Suspect]
     Active Substance: VOXELOTOR
     Dosage: 500 MG, 3 TABLETS, ONCE DAILY
     Route: 048
     Dates: start: 20220726
  4. AMOXICILLIN [Concomitant]
     Active Substance: AMOXICILLIN
     Indication: Prophylaxis
     Dosage: 250 MG, 2X/DAY
  5. URSODIOL [Concomitant]
     Active Substance: URSODIOL
     Indication: Prophylaxis
     Dosage: 300 MG, 2X/DAY
  6. FAMOTIDINE [Concomitant]
     Active Substance: FAMOTIDINE
     Indication: Ulcer
     Dosage: 40 MG
  7. OMEPRAZOLE [Concomitant]
     Active Substance: OMEPRAZOLE
     Indication: Ulcer
     Dosage: 40 MG
  8. OMEPRAZOLE [Concomitant]
     Active Substance: OMEPRAZOLE
     Indication: Hyperchlorhydria
  9. XIFAXAN [Concomitant]
     Active Substance: RIFAXIMIN
     Indication: Prophylaxis
     Dosage: 550 MG, 2X/DAY
     Route: 048
  10. LEVOCARNITINE [Concomitant]
     Active Substance: LEVOCARNITINE
     Indication: Prophylaxis
     Dosage: 330 MG, 1X/DAY
  11. LACTULOSE [Concomitant]
     Active Substance: LACTULOSE
     Dosage: 10 GM/15 ML SOLUTION TAKE 30 ML ONCE A WEEK AS NEEDED
     Route: 048
  12. SYNTHROID [Concomitant]
     Active Substance: LEVOTHYROXINE SODIUM
     Indication: Hypothyroidism
     Dosage: 25 UG, 1X/DAY
  13. FOLIC ACID [Concomitant]
     Active Substance: FOLIC ACID
     Indication: Sickle cell disease
     Dosage: 1 MG, 1X/DAY

REACTIONS (6)
  - Sickle cell anaemia with crisis [Unknown]
  - Atelectasis [Unknown]
  - Pulmonary embolism [Unknown]
  - Off label use [Unknown]
  - Musculoskeletal chest pain [Unknown]
  - Pain [Unknown]

NARRATIVE: CASE EVENT DATE: 20220725
